FAERS Safety Report 7079503-X (Version None)
Quarter: 2010Q4

REPORT INFORMATION
  Report Type: 
  Country: None (occurrence: None)
  Receive Date: 20101102
  Receipt Date: 20101020
  Transmission Date: 20110411
  Serious: Yes (Other)
  Sender: FDA-Public Use
  Company Number: US-ELI_LILLY_AND_COMPANY-US201009006565

PATIENT
  Age: 66 Year
  Sex: Female
  Weight: 71.655 kg

DRUGS (12)
  1. ZYPREXA [Suspect]
     Indication: BIPOLAR II DISORDER
     Dosage: 2.5 MG, UNK
     Dates: start: 20100617
  2. ZYPREXA [Suspect]
     Dosage: 5 MG, UNKNOWN
     Route: 065
  3. ZYPREXA [Suspect]
     Dosage: 10 MG, UNK
     Dates: end: 20100901
  4. PAXIL [Concomitant]
     Dosage: 40 MG, UNK
     Dates: start: 20100617, end: 20100621
  5. PAXIL [Concomitant]
     Dosage: 60 MG, UNK
     Dates: start: 20100622, end: 20100802
  6. PAXIL [Concomitant]
     Dosage: 45 MG, UNK
     Dates: start: 20100802, end: 20100816
  7. PAXIL [Concomitant]
     Dosage: 60 MG, UNK
     Dates: start: 20100816
  8. XANAX [Concomitant]
     Dosage: 1 MG, 2/D
     Dates: start: 20100617, end: 20100801
  9. XANAX [Concomitant]
     Dosage: 1 MG, DAILY (1/D)
     Dates: start: 20100802
  10. BENADRYL [Concomitant]
     Dosage: 2 D/F, DAILY (1/D)
  11. LISINOPRIL [Concomitant]
     Dosage: 20 MG, UNK
     Dates: start: 20100816
  12. JANUMET [Concomitant]
     Dosage: 1 D/F, UNK
     Dates: start: 20100816

REACTIONS (6)
  - BLOOD GLUCOSE INCREASED [None]
  - HYPERHIDROSIS [None]
  - HYPOAESTHESIA [None]
  - POLYDIPSIA [None]
  - POLYURIA [None]
  - RENAL FUNCTION TEST ABNORMAL [None]
